FAERS Safety Report 7407912-5 (Version None)
Quarter: 2011Q2

REPORT INFORMATION
  Report Type: 
  Country: None (occurrence: None)
  Receive Date: 20110412
  Receipt Date: 20110407
  Transmission Date: 20111010
  Serious: No
  Sender: FDA-Public Use
  Company Number: US-PFIZER INC-2011077482

PATIENT
  Sex: Female
  Weight: 106.58 kg

DRUGS (2)
  1. OMEPRAZOLE [Concomitant]
     Indication: COLOSTOMY
     Dosage: UNK
  2. ALPRAZOLAM [Suspect]
     Indication: ANXIETY
     Dosage: 0.5 MG, THRICE A DAY, TWO IN THE MORNING ONE IN THE AFTERNOON AND TWO AT NIGHT
     Route: 048
     Dates: start: 20110320

REACTIONS (1)
  - DRUG INEFFECTIVE [None]
